FAERS Safety Report 9206004 (Version 1)
Quarter: 2013Q2

REPORT INFORMATION
  Report Type: Spontaneous
  Country: US (occurrence: None)
  Receive Date: 20130401
  Receipt Date: 20130401
  Transmission Date: 20140414
  Serious: Yes (Hospitalization)
  Sender: FDA-Public Use
  Company Number: None

PATIENT
  Age: 68 Year
  Sex: Male
  Weight: 103 kg

DRUGS (1)
  1. SULFAMETHOXAZOLE/TRIMETHOPRIM [Suspect]
     Indication: URINARY TRACT INFECTION
     Dosage: 1 TABLET
     Route: 048
     Dates: start: 20121220, end: 20121228

REACTIONS (12)
  - Diarrhoea [None]
  - Chills [None]
  - Pyrexia [None]
  - Suprapubic pain [None]
  - Nausea [None]
  - Vomiting [None]
  - Myalgia [None]
  - Thirst [None]
  - Dizziness postural [None]
  - Lipase increased [None]
  - Blood alkaline phosphatase increased [None]
  - Headache [None]
